FAERS Safety Report 15489998 (Version 1)
Quarter: 2018Q4

REPORT INFORMATION
  Report Type: Spontaneous
  Country: CZ (occurrence: CZ)
  Receive Date: 20181011
  Receipt Date: 20181011
  Transmission Date: 20190205
  Serious: Yes (Life-Threatening)
  Sender: FDA-Public Use
  Company Number: CZ-MYLANLABS-2018M1075024

PATIENT
  Age: 59 Year
  Sex: Female

DRUGS (2)
  1. CARBOPLATIN ACCORD [Concomitant]
     Active Substance: CARBOPLATIN
     Indication: CHEMOTHERAPY
     Dosage: 500 MG, UNK
     Route: 017
     Dates: start: 20180510, end: 20180510
  2. PACLITAXEL MYLAN 6 MG/ML KONCENTR?T PRO INFUZN? ROZTOK [Suspect]
     Active Substance: PACLITAXEL
     Indication: CHEMOTHERAPY
     Dosage: PACLITAXEL IS A PART OF A COMBINED CHEMOTHERAPY TOGETHER WITH CARBOPLATIN ACCORD. THE MEDICATION IS
     Route: 017
     Dates: start: 20180510, end: 20180510

REACTIONS (3)
  - Back pain [Recovered/Resolved]
  - Erythema [Recovered/Resolved]
  - Respiratory distress [Recovered/Resolved]

NARRATIVE: CASE EVENT DATE: 20180510
